FAERS Safety Report 26005732 (Version 1)
Quarter: 2025Q4

REPORT INFORMATION
  Report Type: Spontaneous
  Country: US (occurrence: US)
  Receive Date: 20251106
  Receipt Date: 20251106
  Transmission Date: 20260117
  Serious: No
  Sender: ALEXION PHARMACEUTICALS
  Company Number: US-AstraZeneca-CH-00981076A

PATIENT
  Age: 66 Year
  Sex: Male

DRUGS (1)
  1. CRESTOR [Suspect]
     Active Substance: ROSUVASTATIN CALCIUM
     Dosage: 5 MILLIGRAM, QD
     Route: 065
     Dates: start: 20250619

REACTIONS (4)
  - Blood cholesterol decreased [Unknown]
  - Adverse drug reaction [Unknown]
  - Cholelithiasis [Unknown]
  - Dyspnoea [Unknown]
